FAERS Safety Report 21672595 (Version 1)
Quarter: 2022Q4

REPORT INFORMATION
  Report Type: Spontaneous
  Country: US (occurrence: None)
  Receive Date: 20221201
  Receipt Date: 20221201
  Transmission Date: 20230113
  Serious: Yes (Death)
  Sender: FDA-Public Use
  Company Number: None

PATIENT
  Age: 87 Year
  Sex: Male
  Weight: 92.53 kg

DRUGS (13)
  1. FIRMAGON [Suspect]
     Active Substance: DEGARELIX ACETATE
     Indication: Prostate cancer
     Dosage: FREQUENCY : MONTHLY;?
     Route: 058
  2. ALLOPURINOL [Concomitant]
     Active Substance: ALLOPURINOL
  3. AMLODIPINE BESYLATE [Concomitant]
     Active Substance: AMLODIPINE BESYLATE
  4. FLUCONAZOLE [Concomitant]
     Active Substance: FLUCONAZOLE
  5. LATANOPROST [Concomitant]
     Active Substance: LATANOPROST
  6. MYRBETRIQ [Concomitant]
     Active Substance: MIRABEGRON
  7. NYSTATIN [Concomitant]
  8. PRAVASTATIN SODIUM [Concomitant]
     Active Substance: PRAVASTATIN SODIUM
  9. PREDNISONE [Concomitant]
     Active Substance: PREDNISONE
  10. SILDENAFIL CITRATE [Concomitant]
     Active Substance: SILDENAFIL CITRATE
  11. TRAMADOL HYDROCHLORIDE [Concomitant]
     Active Substance: TRAMADOL HYDROCHLORIDE
  12. TRIAMCINOLONE [Concomitant]
     Active Substance: TRIAMCINOLONE
  13. Acetonide [Concomitant]

REACTIONS (1)
  - Death [None]
